FAERS Safety Report 24693070 (Version 1)
Quarter: 2024Q4

REPORT INFORMATION
  Report Type: Spontaneous
  Country: US (occurrence: None)
  Receive Date: 20241202
  Receipt Date: 20241202
  Transmission Date: 20250114
  Serious: No
  Sender: Public
  Company Number: None

PATIENT
  Age: 55 Year
  Sex: Female
  Weight: 93.89 kg

DRUGS (12)
  1. CORTICOTROPIN [Suspect]
     Active Substance: CORTICOTROPIN
     Indication: Multiple sclerosis
     Dosage: 40 IU DAILY SUBCUTANEOUS
     Route: 058
     Dates: start: 20241008, end: 20241017
  2. Amitryptyline HCl [Concomitant]
  3. SEROQUEL [Concomitant]
     Active Substance: QUETIAPINE FUMARATE
  4. PEPCID [Concomitant]
     Active Substance: FAMOTIDINE
  5. Ditropan XL Extended Re [Concomitant]
  6. EMGALITY [Concomitant]
     Active Substance: GALCANEZUMAB-GNLM
  7. Wellbutrin XL Extended [Concomitant]
  8. PROTONIX [Concomitant]
     Active Substance: PANTOPRAZOLE SODIUM
  9. CATAFLAM [Concomitant]
     Active Substance: DICLOFENAC POTASSIUM
  10. SYNTHROID [Concomitant]
     Active Substance: LEVOTHYROXINE SODIUM
  11. ZANAFLEX [Concomitant]
     Active Substance: TIZANIDINE HYDROCHLORIDE
  12. TYSABRI [Concomitant]
     Active Substance: NATALIZUMAB

REACTIONS (3)
  - Pain [None]
  - Hypoaesthesia [None]
  - Muscle spasms [None]

NARRATIVE: CASE EVENT DATE: 20241202
